FAERS Safety Report 4843862-6 (Version None)
Quarter: 2005Q4

REPORT INFORMATION
  Report Type: 
  Country: None (occurrence: None)
  Receive Date: 20051129
  Receipt Date: 20051116
  Transmission Date: 20060501
  Serious: Yes (Hospitalization)
  Sender: FDA-Public Use
  Company Number: AU-2005-024608

PATIENT
  Age: 20 Year
  Sex: Female

DRUGS (1)
  1. ULTRAVIST 300 [Suspect]
     Indication: COMPUTERISED TOMOGRAM ABDOMEN
     Dosage: 95 MI, 1 DOSE, INTRAVNEOUS
     Route: 042
     Dates: start: 20051115, end: 20051115

REACTIONS (1)
  - NASAL CONGESTION [None]
